FAERS Safety Report 23132741 (Version 1)
Quarter: 2023Q4

REPORT INFORMATION
  Report Type: Spontaneous
  Country: US (occurrence: US)
  Receive Date: 20231101
  Receipt Date: 20231101
  Transmission Date: 20240109
  Serious: No
  Sender: FDA-Public Use
  Company Number: US-BEH-2023164853

PATIENT
  Sex: Female

DRUGS (2)
  1. HIZENTRA [Suspect]
     Active Substance: HUMAN IMMUNOGLOBULIN G
     Indication: Humoral immune defect
     Dosage: 9 GRAM, QW
     Route: 058
     Dates: start: 202001
  2. SOTYKTU [Concomitant]
     Active Substance: DEUCRAVACITINIB

REACTIONS (1)
  - Psoriasis [Unknown]
